FAERS Safety Report 11982253 (Version 1)
Quarter: 2016Q1

REPORT INFORMATION
  Report Type: Spontaneous
  Country: US (occurrence: None)
  Receive Date: 20160129
  Receipt Date: 20160129
  Transmission Date: 20160526
  Serious: Yes (Life-Threatening, Hospitalization)
  Sender: FDA-Public Use
  Company Number: None

PATIENT
  Age: 69 Year
  Sex: Female
  Weight: 76.2 kg

DRUGS (4)
  1. LEVOTHYROXINE. [Concomitant]
     Active Substance: LEVOTHYROXINE
  2. ALEVE [Suspect]
     Active Substance: NAPROXEN SODIUM
     Indication: LIGAMENT SPRAIN
     Dosage: 220 MG, 1 OR 2 PILLS EVERY 8 TO 12 HRS. NOT TO EXCEDE 3 PILLS; 1CAPLET EVERY 8 TO 12 HRS. MOUTH
     Route: 048
     Dates: end: 20151201
  3. METOPROLOL. [Concomitant]
     Active Substance: METOPROLOL
  4. SIMVASTATIN. [Concomitant]
     Active Substance: SIMVASTATIN

REACTIONS (3)
  - Diarrhoea [None]
  - Muscle spasms [None]
  - Rectal haemorrhage [None]

NARRATIVE: CASE EVENT DATE: 20151201
